FAERS Safety Report 6401247-5 (Version None)
Quarter: 2009Q4

REPORT INFORMATION
  Report Type: 
  Country: None (occurrence: None)
  Receive Date: 20091009
  Receipt Date: 20091009
  Transmission Date: 20100525
  Serious: Yes (Other)
  Sender: FDA-Public Use
  Company Number: None

PATIENT
  Age: 87 Year
  Sex: Female

DRUGS (1)
  1. UNFRACTIONATED HEPARIN -UFH- 25000 IU/5 ML [Suspect]
     Indication: PERCUTANEOUS CORONARY INTERVENTION
     Dosage: 3000IU IV
     Route: 042
     Dates: start: 20090623, end: 20090625

REACTIONS (2)
  - POST PROCEDURAL COMPLICATION [None]
  - THROMBOSIS IN DEVICE [None]
